FAERS Safety Report 9279248 (Version 1)
Quarter: 2013Q2

REPORT INFORMATION
  Report Type: Spontaneous
  Country: SE (occurrence: None)
  Receive Date: 20130501
  Receipt Date: 20130501
  Transmission Date: 20140414
  Serious: Yes (Other)
  Sender: FDA-Public Use
  Company Number: NGX_01532_2012

PATIENT
  Sex: Male

DRUGS (2)
  1. QUTENZA [Suspect]
     Indication: OFF LABEL USE
     Dosage: (DF [APPLIED TO STUMP]
     Route: 061
     Dates: start: 20121203, end: 20121203
  2. NITRAZEPAM (UNKNOWN) [Concomitant]

REACTIONS (2)
  - Application site pain [None]
  - Drug ineffective [None]
